FAERS Safety Report 8427231-8 (Version None)
Quarter: 2012Q2

REPORT INFORMATION
  Report Type: 
  Country: None (occurrence: None)
  Receive Date: 20120611
  Receipt Date: 20120606
  Transmission Date: 20120825
  Serious: Yes (Congenital Anomaly)
  Sender: FDA-Public Use
  Company Number: US-GLAXOSMITHKLINE-A0927140A

PATIENT
  Sex: Male

DRUGS (1)
  1. PAXIL CR [Suspect]
     Indication: ANXIETY
     Dosage: 37.5MG UNKNOWN
     Route: 064
     Dates: start: 20021120

REACTIONS (3)
  - TALIPES [None]
  - CONGENITAL ANOMALY [None]
  - FOETAL EXPOSURE DURING PREGNANCY [None]
